FAERS Safety Report 23740592 (Version 1)
Quarter: 2024Q2

REPORT INFORMATION
  Report Type: Spontaneous
  Country: US (occurrence: US)
  Receive Date: 20240415
  Receipt Date: 20240415
  Transmission Date: 20240716
  Serious: Yes (Other)
  Sender: FDA-Public Use
  Company Number: US-JNJFOC-20240410631

PATIENT
  Age: 51 Year
  Sex: Female

DRUGS (1)
  1. TRABECTEDIN [Suspect]
     Active Substance: TRABECTEDIN
     Indication: Leiomyosarcoma metastatic
     Route: 065

REACTIONS (3)
  - Myocardial injury [Unknown]
  - Rhabdomyolysis [Unknown]
  - Acute kidney injury [Unknown]
